FAERS Safety Report 19659855 (Version 1)
Quarter: 2021Q3

REPORT INFORMATION
  Report Type: Spontaneous
  Country: US (occurrence: US)
  Receive Date: 20210805
  Receipt Date: 20210805
  Transmission Date: 20211014
  Serious: Yes (Other)
  Sender: FDA-Public Use
  Company Number: US-ANXN-000003

PATIENT
  Age: 61 Year
  Sex: Female

DRUGS (1)
  1. SEVELAMER/SEVELAMER HYDROCHLORIDE [Suspect]
     Active Substance: SEVELAMER
     Indication: PRODUCT USED FOR UNKNOWN INDICATION
     Route: 065

REACTIONS (3)
  - Gastric ulcer [Unknown]
  - Gastrointestinal injury [Unknown]
  - Rectal haemorrhage [Unknown]
